FAERS Safety Report 22124113 (Version 1)
Quarter: 2023Q1

REPORT INFORMATION
  Report Type: Spontaneous
  Country: ES (occurrence: ES)
  Receive Date: 20230322
  Receipt Date: 20230322
  Transmission Date: 20230417
  Serious: Yes (Life-Threatening, Hospitalization)
  Sender: FDA-Public Use
  Company Number: None

PATIENT
  Age: 49 Year
  Sex: Female
  Weight: 75 kg

DRUGS (2)
  1. LAMOTRIGINE [Suspect]
     Active Substance: LAMOTRIGINE
     Indication: Suicide attempt
     Dosage: 10000 MG (TOTAL, CALCULAN INGESTA DE 100 COMPRIMIDOS DE 100 MG)
     Route: 048
     Dates: start: 20200505, end: 20200505
  2. FLURAZEPAM [Suspect]
     Active Substance: FLURAZEPAM HYDROCHLORIDE
     Indication: Suicide attempt
     Dosage: 600 MG (TOTAL, CALCULAN 20 COMPRIMIDOS DE 30 MG)
     Route: 048
     Dates: start: 20200505, end: 20200505

REACTIONS (2)
  - Drug-induced liver injury [Recovering/Resolving]
  - Rhabdomyolysis [Recovering/Resolving]

NARRATIVE: CASE EVENT DATE: 20200506
